FAERS Safety Report 13769699 (Version 1)
Quarter: 2017Q3

REPORT INFORMATION
  Report Type: Spontaneous
  Country: ES (occurrence: ES)
  Receive Date: 20170719
  Receipt Date: 20170719
  Transmission Date: 20171127
  Serious: Yes (Other)
  Sender: FDA-Public Use
  Company Number: ES-PFIZER INC-3242212

PATIENT
  Sex: Male
  Weight: 88 kg

DRUGS (1)
  1. OXALIPLATIN. [Suspect]
     Active Substance: OXALIPLATIN
     Indication: PRODUCT USED FOR UNKNOWN INDICATION
     Dosage: 129 MG, UNK
     Route: 042
     Dates: start: 20160330

REACTIONS (6)
  - Oxygen saturation decreased [Unknown]
  - Discomfort [Unknown]
  - Hyperhidrosis [Unknown]
  - Chest pain [Unknown]
  - Infusion related reaction [Unknown]
  - Depressed level of consciousness [Unknown]

NARRATIVE: CASE EVENT DATE: 20160405
